FAERS Safety Report 14035645 (Version 7)
Quarter: 2018Q2

REPORT INFORMATION
  Report Type: Spontaneous
  Country: US (occurrence: US)
  Receive Date: 20171003
  Receipt Date: 20180502
  Transmission Date: 20180711
  Serious: Yes (Death, Other)
  Sender: FDA-Public Use
  Company Number: US-ACTELION-A-US2017-160055

PATIENT
  Age: 77 Year
  Sex: Male

DRUGS (11)
  1. UPTRAVI [Suspect]
     Active Substance: SELEXIPAG
     Indication: PULMONARY ARTERIAL HYPERTENSION
     Dosage: 600 MCG, BID
     Route: 048
     Dates: end: 20171211
  2. ASA [Concomitant]
     Active Substance: ASPIRIN
  3. NOVOLOG [Concomitant]
     Active Substance: INSULIN ASPART
  4. OPSUMIT [Suspect]
     Active Substance: MACITENTAN
     Indication: PULMONARY ARTERIAL HYPERTENSION
     Dosage: 10 MG, QD
     Route: 048
     Dates: start: 20150220, end: 20171211
  5. OXYGEN. [Concomitant]
     Active Substance: OXYGEN
  6. UPTRAVI [Suspect]
     Active Substance: SELEXIPAG
     Dosage: UNK
     Route: 048
     Dates: start: 20161024
  7. TADALAFIL [Concomitant]
     Active Substance: TADALAFIL
  8. VITAMIN D [Concomitant]
     Active Substance: CHOLECALCIFEROL
  9. ALBUTEROL. [Concomitant]
     Active Substance: ALBUTEROL
  10. ALLOPURINOL. [Concomitant]
     Active Substance: ALLOPURINOL
  11. VITAMIN C [Concomitant]
     Active Substance: ASCORBIC ACID

REACTIONS (9)
  - Immobile [Unknown]
  - Hypoxia [Unknown]
  - Oxygen saturation decreased [Unknown]
  - Swelling [Unknown]
  - Cardiac failure [Fatal]
  - Malaise [Unknown]
  - Condition aggravated [Unknown]
  - General physical health deterioration [Unknown]
  - Dyspnoea [Unknown]
